FAERS Safety Report 10223592 (Version 1)
Quarter: 2014Q2

REPORT INFORMATION
  Report Type: Spontaneous
  Country: FR (occurrence: FR)
  Receive Date: 20140609
  Receipt Date: 20140609
  Transmission Date: 20141212
  Serious: Yes (Life-Threatening)
  Sender: FDA-Public Use
  Company Number: FR-ROCHE-1415054

PATIENT
  Age: 73 Year
  Sex: Male

DRUGS (18)
  1. CELLCEPT [Suspect]
     Indication: KIDNEY TRANSPLANT REJECTION
     Route: 048
  2. SOLUPRED (FRANCE) [Suspect]
     Indication: PRODUCT USED FOR UNKNOWN INDICATION
     Route: 048
  3. ADVAGRAF [Suspect]
     Indication: PRODUCT USED FOR UNKNOWN INDICATION
     Route: 048
     Dates: start: 2013
  4. RAPAMUNE [Suspect]
     Indication: PRODUCT USED FOR UNKNOWN INDICATION
     Route: 048
     Dates: start: 2011, end: 2013
  5. THYMOGLOBULINE [Concomitant]
  6. IMUREL [Concomitant]
  7. NEORAL [Concomitant]
  8. LASILIX [Concomitant]
     Route: 065
  9. TRIATEC (FRANCE) [Concomitant]
     Route: 065
  10. CARDENSIEL [Concomitant]
     Dosage: 1.5 TABLETS IN THE MORNING AND 1 TABLET IN THE EVENING
     Route: 065
  11. ROCALTROL [Concomitant]
     Route: 065
  12. OROCAL [Concomitant]
  13. MIMPARA [Concomitant]
     Route: 065
  14. TAHOR [Concomitant]
     Route: 065
  15. KARDEGIC [Concomitant]
     Route: 065
  16. MOPRAL [Concomitant]
     Route: 065
  17. DISCOTRINE [Concomitant]
     Route: 065
  18. PREVISCAN (FRANCE) [Concomitant]
     Route: 065

REACTIONS (1)
  - B-cell lymphoma [Recovering/Resolving]
